FAERS Safety Report 5527933-7 (Version None)
Quarter: 2007Q4

REPORT INFORMATION
  Report Type: 
  Country: None (occurrence: None)
  Receive Date: 20071123
  Receipt Date: 20071112
  Transmission Date: 20080405
  Serious: Yes (Death, Hospitalization, Other)
  Sender: FDA-Public Use
  Company Number: 2007VX002773

PATIENT
  Sex: Male

DRUGS (6)
  1. PERMAX [Suspect]
     Indication: PARKINSON'S DISEASE
     Dosage: 1500 UG;QD; PO
     Route: 048
     Dates: start: 19980630
  2. CABERGOLINE [Concomitant]
  3. SELEGILINE HCL [Concomitant]
  4. HYDROCHLORIDE [Concomitant]
  5. RIVOTRIL [Concomitant]
  6. BLOPRESS [Concomitant]

REACTIONS (17)
  - ACCIDENTAL DEATH [None]
  - ATRIAL FIBRILLATION [None]
  - BLOOD PRESSURE ABNORMAL [None]
  - CARDIAC FAILURE [None]
  - CARDIAC MURMUR [None]
  - CAROTID ARTERY DISEASE [None]
  - CHEST PAIN [None]
  - DYSPNOEA EXERTIONAL [None]
  - FATIGUE [None]
  - HEART RATE ABNORMAL [None]
  - MITRAL VALVE INCOMPETENCE [None]
  - NOCTURNAL DYSPNOEA [None]
  - OEDEMA PERIPHERAL [None]
  - ORTHOPNOEA [None]
  - PALPITATIONS [None]
  - PULMONARY VALVE INCOMPETENCE [None]
  - TRICUSPID VALVE INCOMPETENCE [None]
